FAERS Safety Report 20708920 (Version 1)
Quarter: 2022Q2

REPORT INFORMATION
  Report Type: Spontaneous
  Country: US (occurrence: None)
  Receive Date: 20220413
  Receipt Date: 20220413
  Transmission Date: 20220721
  Serious: Yes (Hospitalization)
  Sender: FDA-Public Use
  Company Number: None

PATIENT
  Sex: Female

DRUGS (2)
  1. BENLYSTA [Suspect]
     Active Substance: BELIMUMAB
     Indication: Systemic lupus erythematosus
     Dosage: INJECT 1 ML UNDER THE SKIN (SUBCUTANEOUS  INJECTION) ONE TIME A WEEK?
     Route: 058
     Dates: start: 20210119
  2. NITROGLYCERN [Concomitant]

REACTIONS (2)
  - Pneumonia [None]
  - Therapy interrupted [None]
